FAERS Safety Report 25261142 (Version 4)
Quarter: 2025Q3

REPORT INFORMATION
  Report Type: Spontaneous
  Country: US (occurrence: US)
  Receive Date: 20250501
  Receipt Date: 20250729
  Transmission Date: 20251020
  Serious: No
  Sender: PFIZER
  Company Number: US-PFIZER INC-PV202500051540

PATIENT
  Age: 78 Year
  Sex: Female

DRUGS (1)
  1. TUKYSA [Suspect]
     Active Substance: TUCATINIB
     Dosage: 300 MG, 2X/DAY (2 TABLETS TWICE DAILY)

REACTIONS (5)
  - Joint injury [Unknown]
  - Peripheral swelling [Unknown]
  - Oedema [Unknown]
  - Arthritis [Unknown]
  - Pain [Unknown]
